FAERS Safety Report 23978390 (Version 1)
Quarter: 2024Q2

REPORT INFORMATION
  Report Type: Report from Study
  Country: TH (occurrence: None)
  Receive Date: 20240614
  Receipt Date: 20240614
  Transmission Date: 20240716
  Serious: Yes (Other)
  Sender: FDA-Public Use
  Company Number: 2024A118955

PATIENT
  Age: 20570 Day
  Sex: Female

DRUGS (2)
  1. LYNPARZA [Suspect]
     Active Substance: OLAPARIB
     Dosage: 150 MG 1 TABLETS BID AC
     Route: 048
     Dates: start: 20240502
  2. LYNPARZA [Suspect]
     Active Substance: OLAPARIB
     Dosage: 150 MG 1 TABLET MORNING AND 2 TABLETS EVENING AC
     Route: 048
     Dates: start: 20240517

REACTIONS (5)
  - White blood cell count abnormal [Unknown]
  - Dizziness [Recovered/Resolved]
  - Rash pruritic [Recovered/Resolved]
  - Constipation [Unknown]
  - Off label use [Unknown]

NARRATIVE: CASE EVENT DATE: 20240502
